FAERS Safety Report 17532548 (Version 3)
Quarter: 2020Q2

REPORT INFORMATION
  Report Type: Spontaneous
  Country: US (occurrence: US)
  Receive Date: 20200312
  Receipt Date: 20200428
  Transmission Date: 20200713
  Serious: Yes (Other)
  Sender: FDA-Public Use
  Company Number: US-TASMAN PHARMA, INC.-2020TSM00092

PATIENT
  Sex: Female
  Weight: 60.1 kg

DRUGS (12)
  1. CLOZAPINE. [Suspect]
     Active Substance: CLOZAPINE
     Dosage: 150 MG, 1X/DAY
     Route: 048
     Dates: start: 202003, end: 202003
  2. CLOZAPINE. [Suspect]
     Active Substance: CLOZAPINE
     Dosage: 250 MG, 1X/DAY
     Route: 048
     Dates: start: 202003, end: 202003
  3. CLOZAPINE. [Suspect]
     Active Substance: CLOZAPINE
     Dosage: 200 MG, 1X/DAY
     Route: 048
     Dates: start: 202003, end: 202003
  4. ABILIFY [Concomitant]
     Active Substance: ARIPIPRAZOLE
  5. GEODON [Concomitant]
     Active Substance: ZIPRASIDONE HYDROCHLORIDE\ZIPRASIDONE MESYLATE
     Dosage: 40 MG, 2X/DAY
     Route: 048
  6. CLOZAPINE. [Suspect]
     Active Substance: CLOZAPINE
     Indication: PSYCHOTIC DISORDER
     Dosage: 150 MG, 1X/DAY
     Route: 048
     Dates: start: 20200226, end: 202003
  7. ATORVASTATIN [Concomitant]
     Active Substance: ATORVASTATIN
     Dosage: 20 MG, 1X/DAY
     Route: 048
  8. LOXAPINE. [Concomitant]
     Active Substance: LOXAPINE
  9. CLOZAPINE. [Suspect]
     Active Substance: CLOZAPINE
     Dosage: 125 MG, 1X/DAY AT BEDTIME NIGHTLY
     Route: 048
     Dates: start: 202003
  10. AMLODIPINE [Concomitant]
     Active Substance: AMLODIPINE BESYLATE
     Dosage: 2.5 MG, 1X/DAY
     Route: 048
  11. HALDOL [Concomitant]
     Active Substance: HALOPERIDOL
  12. GEODON [Concomitant]
     Active Substance: ZIPRASIDONE HYDROCHLORIDE\ZIPRASIDONE MESYLATE
     Dosage: 80 MG, 2X/DAY
     Route: 048

REACTIONS (1)
  - Diabetes mellitus [Unknown]

NARRATIVE: CASE EVENT DATE: 2020
